FAERS Safety Report 17618882 (Version 1)
Quarter: 2020Q2

REPORT INFORMATION
  Report Type: Spontaneous
  Country: US (occurrence: US)
  Receive Date: 20200403
  Receipt Date: 20200403
  Transmission Date: 20200713
  Serious: No
  Sender: FDA-Public Use
  Company Number: US-BAUSCH-BL-2020-007297

PATIENT
  Age: 69 Year
  Sex: Female

DRUGS (2)
  1. LUMIFY [Suspect]
     Active Substance: BRIMONIDINE TARTRATE
     Indication: PRODUCT USE IN UNAPPROVED INDICATION
  2. LUMIFY [Suspect]
     Active Substance: BRIMONIDINE TARTRATE
     Indication: EYE DISORDER
     Dosage: STARTED APPROXIMATELY 1 YEAR AGO SOMETIME IN 2019 (1 DROP IN EACH EYE 1-2 TIMES A DAY)
     Route: 047
     Dates: start: 2019

REACTIONS (4)
  - Drug ineffective for unapproved indication [Unknown]
  - Product use in unapproved indication [Unknown]
  - Product physical consistency issue [Unknown]
  - Product dropper issue [Unknown]

NARRATIVE: CASE EVENT DATE: 2019
